FAERS Safety Report 22540477 (Version 1)
Quarter: 2023Q2

REPORT INFORMATION
  Report Type: Spontaneous
  Country: US (occurrence: None)
  Receive Date: 20230608
  Receipt Date: 20230608
  Transmission Date: 20230722
  Serious: Yes (Disabling, Other)
  Sender: FDA-Public Use
  Company Number: None

PATIENT
  Age: 68 Year
  Sex: Female
  Weight: 76.95 kg

DRUGS (11)
  1. NUCALA [Suspect]
     Active Substance: MEPOLIZUMAB
     Indication: Vasculitis
     Dosage: OTHER QUANTITY : 3 INJECTION(S);?FREQUENCY : MONTHLY;?
     Route: 030
     Dates: start: 20221106, end: 20230206
  2. NORCO [Concomitant]
     Active Substance: ACETAMINOPHEN\HYDROCODONE BITARTRATE
  3. GABAPENTIN [Concomitant]
     Active Substance: GABAPENTIN
  4. OLMESARTAN [Concomitant]
     Active Substance: OLMESARTAN
  5. FLEXERIL [Concomitant]
     Active Substance: CYCLOBENZAPRINE HYDROCHLORIDE
  6. ALBUTEROL [Concomitant]
     Active Substance: ALBUTEROL
  7. RIZATRIPTAN [Concomitant]
     Active Substance: RIZATRIPTAN
  8. Citricel [Concomitant]
  9. EXCEDRIN [Concomitant]
     Active Substance: ACETAMINOPHEN\ASPIRIN\CAFFEINE
  10. TYLENOL [Concomitant]
     Active Substance: ACETAMINOPHEN
  11. neuriva [Concomitant]

REACTIONS (6)
  - Skin lesion [None]
  - Impaired healing [None]
  - Wound [None]
  - Blister rupture [None]
  - Skin burning sensation [None]
  - Burning sensation [None]

NARRATIVE: CASE EVENT DATE: 20221106
